FAERS Safety Report 6597832-0 (Version None)
Quarter: 2010Q1

REPORT INFORMATION
  Report Type: 
  Country: None (occurrence: None)
  Receive Date: 20100216
  Receipt Date: 20100129
  Transmission Date: 20100710
  Serious: Yes (Life-Threatening, Hospitalization)
  Sender: FDA-Public Use
  Company Number: 2010020016

PATIENT
  Age: 87 Year
  Sex: Female

DRUGS (10)
  1. TORSEMIDE [Suspect]
     Indication: CARDIAC FAILURE CHRONIC
     Dosage: 5 MG (5 MG, 1 IN 1 D), ORAL; AFTER A PAUSE ADMINISTRATON CONTINUED AT 1 X 2.5 MG/DAY
     Route: 048
     Dates: start: 20090115, end: 20090818
  2. DIGITOXIN TAB [Suspect]
     Indication: CARDIAC FAILURE CHRONIC
     Dosage: 0.07 MG (0.07 MG, 1 IN 1 DAY), ORAL
     Route: 048
     Dates: start: 20090115, end: 20090818
  3. VOTUM (OLMESARTAN, HYDROCHLOROTHIAZIDE) [Suspect]
     Indication: HYPERTENSION
     Dosage: 20 MG, OLMESARTAN + 12.5 MG HYDROCHLOROTHIAZIDE (1 DOSAGE FORMS, 2 IN 1 D),ORAL
     Route: 048
     Dates: start: 20090115, end: 20090818
  4. LEVOTHYROXINE SODIUM [Concomitant]
  5. ASPIRIN [Concomitant]
  6. BROMHEXINE (BROMHEXINE) [Concomitant]
  7. PERENTEROL (YEAST DRIED) [Concomitant]
  8. ROMYK  (ROXITHROMYCIN) [Concomitant]
  9. BISOHEXAL  (BISOPROLOL HEMIFUMARATE) [Concomitant]
  10. MOXOBETA   (MOXONIDINE) [Concomitant]

REACTIONS (8)
  - ACUTE PRERENAL FAILURE [None]
  - ATRIAL FIBRILLATION [None]
  - BRONCHITIS [None]
  - DEHYDRATION [None]
  - DIARRHOEA [None]
  - HYPOPHAGIA [None]
  - THERAPEUTIC AGENT TOXICITY [None]
  - URINARY TRACT INFECTION [None]
